FAERS Safety Report 7198391-4 (Version None)
Quarter: 2010Q4

REPORT INFORMATION
  Report Type: 
  Country: None (occurrence: None)
  Receive Date: 20101227
  Receipt Date: 20101216
  Transmission Date: 20110411
  Serious: Yes (Hospitalization)
  Sender: FDA-Public Use
  Company Number: JP-JNJFOC-20100402651

PATIENT
  Sex: Male
  Weight: 51 kg

DRUGS (18)
  1. DUROTEP MT PATCH [Suspect]
     Indication: LARGE INTESTINE CARCINOMA
     Route: 062
  2. DUROTEP MT PATCH [Suspect]
     Route: 062
  3. DUROTEP MT PATCH [Suspect]
     Route: 062
  4. DUROTEP MT PATCH [Suspect]
     Route: 062
  5. DUROTEP MT PATCH [Suspect]
     Route: 062
  6. DUROTEP MT PATCH [Suspect]
     Route: 062
  7. DUROTEP MT PATCH [Suspect]
     Route: 062
  8. DUROTEP MT PATCH [Suspect]
     Route: 062
  9. DUROTEP MT PATCH [Suspect]
     Route: 062
  10. DUROTEP MT PATCH [Suspect]
     Indication: CANCER PAIN
     Route: 062
  11. DUROTEP MT PATCH [Suspect]
     Route: 062
  12. DUROTEP MT PATCH [Suspect]
     Route: 062
  13. DUROTEP MT PATCH [Suspect]
     Route: 062
  14. DUROTEP MT PATCH [Suspect]
     Route: 062
  15. DUROTEP MT PATCH [Suspect]
     Route: 062
  16. DUROTEP MT PATCH [Suspect]
     Route: 062
  17. DUROTEP MT PATCH [Suspect]
     Route: 062
  18. DUROTEP MT PATCH [Suspect]
     Route: 062

REACTIONS (4)
  - DEPRESSED LEVEL OF CONSCIOUSNESS [None]
  - MYOCLONUS [None]
  - OVERDOSE [None]
  - PYREXIA [None]
